FAERS Safety Report 13947702 (Version 3)
Quarter: 2017Q4

REPORT INFORMATION
  Report Type: Spontaneous
  Country: US (occurrence: US)
  Receive Date: 20170908
  Receipt Date: 20171220
  Transmission Date: 20180320
  Serious: Yes (Hospitalization, Other)
  Sender: FDA-Public Use
  Company Number: PHEH2017US028221

PATIENT
  Age: 61 Year
  Sex: Female
  Weight: 74 kg

DRUGS (3)
  1. TACROLIMUS. [Suspect]
     Active Substance: TACROLIMUS
     Indication: LIVER TRANSPLANT
     Dosage: UNK, BID
     Route: 048
     Dates: start: 20171201
  2. PREDNISONE. [Suspect]
     Active Substance: PREDNISONE
     Indication: LIVER TRANSPLANT
     Dosage: 5 MG, QD
     Route: 048
     Dates: start: 20171129
  3. ZORTRESS [Suspect]
     Active Substance: EVEROLIMUS
     Indication: LIVER TRANSPLANT
     Dosage: 1.5 MG, BID
     Route: 048
     Dates: start: 20170501, end: 20170815

REACTIONS (8)
  - Bronchiolitis [Recovered/Resolved]
  - Escherichia urinary tract infection [Recovered/Resolved]
  - Chest X-ray abnormal [Recovered/Resolved]
  - Atelectasis [Unknown]
  - Pneumonia [Recovered/Resolved]
  - Wheezing [Unknown]
  - Crepitations [Unknown]
  - Granuloma [Unknown]

NARRATIVE: CASE EVENT DATE: 20170501
